FAERS Safety Report 5753715-7 (Version None)
Quarter: 2008Q2

REPORT INFORMATION
  Report Type: 
  Country: None (occurrence: None)
  Receive Date: 20080530
  Receipt Date: 20080522
  Transmission Date: 20081010
  Serious: Yes (Death, Hospitalization)
  Sender: FDA-Public Use
  Company Number: US-SANOFI-SYNTHELABO-A03200800033

PATIENT
  Sex: Female
  Weight: 58.4 kg

DRUGS (13)
  1. ELOXATIN [Suspect]
     Indication: RECTAL CANCER
     Dosage: 136 MG EVERY OTHER WEEK
     Route: 042
     Dates: start: 20071105, end: 20071105
  2. DECADRON [Concomitant]
     Indication: DRUG USE FOR UNKNOWN INDICATION
     Route: 042
  3. ALOXI [Concomitant]
     Indication: DRUG USE FOR UNKNOWN INDICATION
     Route: 042
  4. FLUOROURACIL [Concomitant]
     Indication: DRUG USE FOR UNKNOWN INDICATION
     Dosage: UNK
     Route: 065
  5. AVASTIN [Concomitant]
     Indication: DRUG USE FOR UNKNOWN INDICATION
     Route: 065
  6. ERBITUX [Concomitant]
     Indication: DRUG USE FOR UNKNOWN INDICATION
     Route: 042
  7. LEUCOVORIN CALCIUM [Suspect]
     Indication: METASTASES TO LIVER
     Route: 042
     Dates: start: 20071008, end: 20071001
  8. BENADRYL [Concomitant]
     Indication: DRUG USE FOR UNKNOWN INDICATION
     Route: 042
  9. SOLU-MEDROL [Concomitant]
     Indication: DRUG USE FOR UNKNOWN INDICATION
     Dosage: UNK
     Route: 065
  10. NIFEDIAC [Concomitant]
     Indication: BLOOD PRESSURE
     Route: 048
  11. VICODIN [Concomitant]
     Indication: PAIN
     Route: 065
  12. LUNESTA [Concomitant]
     Indication: SLEEP DISORDER
     Dosage: UNK
     Route: 048
  13. K-DUR [Concomitant]
     Indication: MINERAL SUPPLEMENTATION
     Route: 048

REACTIONS (3)
  - ATRIOVENTRICULAR BLOCK COMPLETE [None]
  - BRADYCARDIA [None]
  - HYPERSENSITIVITY [None]
